FAERS Safety Report 20622383 (Version 2)
Quarter: 2022Q2

REPORT INFORMATION
  Report Type: Report from Study
  Country: BR (occurrence: BR)
  Receive Date: 20220322
  Receipt Date: 20220401
  Transmission Date: 20220720
  Serious: Yes (Other)
  Sender: FDA-Public Use
  Company Number: BR-NOVARTISPH-NVSC2022BR063925

PATIENT
  Age: 46 Year
  Sex: Female
  Weight: 102 kg

DRUGS (8)
  1. COSENTYX [Suspect]
     Active Substance: SECUKINUMAB
     Indication: Psoriatic arthropathy
     Dosage: UNK, QMO
     Route: 058
     Dates: start: 2016
  2. COSENTYX [Suspect]
     Active Substance: SECUKINUMAB
     Dosage: 300 MG
     Route: 065
     Dates: start: 201707
  3. AZITHROMYCIN [Suspect]
     Active Substance: AZITHROMYCIN
     Indication: Product used for unknown indication
     Dosage: UNK
     Route: 065
  4. DEXAMETHASONE [Suspect]
     Active Substance: DEXAMETHASONE
     Indication: Psoriasis
     Dosage: UNK
     Route: 065
  5. DESOGESTREL [Suspect]
     Active Substance: DESOGESTREL
     Indication: Haemorrhage
     Dosage: UNK
     Route: 065
  6. OMEPRAZOLE [Suspect]
     Active Substance: OMEPRAZOLE
     Indication: Product used for unknown indication
     Dosage: UNK
     Route: 065
  7. ACETAMINOPHEN [Suspect]
     Active Substance: ACETAMINOPHEN
     Indication: Product used for unknown indication
     Dosage: UNK
     Route: 065
  8. IBUPROFEN [Suspect]
     Active Substance: IBUPROFEN
     Indication: Product used for unknown indication
     Dosage: UNK
     Route: 065

REACTIONS (14)
  - Haemorrhage [Unknown]
  - Pruritus [Not Recovered/Not Resolved]
  - Urticaria [Not Recovered/Not Resolved]
  - Dysuria [Unknown]
  - Scratch [Unknown]
  - Wound [Unknown]
  - Herpes virus infection [Unknown]
  - Nervousness [Unknown]
  - Emotional disorder [Unknown]
  - Rheumatic disorder [Recovered/Resolved]
  - Feeling abnormal [Unknown]
  - Unevaluable event [Unknown]
  - Anxiety [Unknown]
  - Product use in unapproved indication [Unknown]

NARRATIVE: CASE EVENT DATE: 20201101
